FAERS Safety Report 10012215 (Version 1)
Quarter: 2014Q1

REPORT INFORMATION
  Report Type: Spontaneous
  Country: US (occurrence: None)
  Receive Date: 20140313
  Receipt Date: 20140313
  Transmission Date: 20141002
  Serious: Yes (Other)
  Sender: FDA-Public Use
  Company Number: None

PATIENT
  Age: 64 Year
  Sex: Male
  Weight: 79.38 kg

DRUGS (10)
  1. PRAVASTATIN [Suspect]
     Indication: BLOOD CHOLESTEROL INCREASED
     Route: 048
     Dates: start: 20080316, end: 20131218
  2. PRAVASTATIN NA [Concomitant]
  3. CLOBEX [Concomitant]
  4. PROSTATE FORMULA [Concomitant]
  5. SAW PALMETTO [Concomitant]
  6. VITAMINS [Concomitant]
  7. FLUNISOLIDE [Concomitant]
  8. VITAMIN C [Concomitant]
  9. OMEGA 3 FISH OIL [Concomitant]
  10. MULTIVITAMIN [Concomitant]

REACTIONS (5)
  - Rash erythematous [None]
  - Cutaneous lupus erythematosus [None]
  - Musculoskeletal pain [None]
  - Neck pain [None]
  - Arthralgia [None]
